FAERS Safety Report 8524806-2 (Version None)
Quarter: 2012Q3

REPORT INFORMATION
  Report Type: 
  Country: None (occurrence: None)
  Receive Date: 20120720
  Receipt Date: 20120712
  Transmission Date: 20120928
  Serious: Yes (Hospitalization)
  Sender: FDA-Public Use
  Company Number: US-VIIV HEALTHCARE LIMITED-A0985282A

PATIENT
  Age: 36 Year
  Sex: Female

DRUGS (3)
  1. LOPINAVIR AND RITONAVIR [Suspect]
     Indication: PRODUCT USED FOR UNKNOWN INDICATION
  2. COMBIVIR [Suspect]
     Indication: PRODUCT USED FOR UNKNOWN INDICATION
     Dates: start: 20110322
  3. KALETRA [Suspect]
     Indication: PRODUCT USED FOR UNKNOWN INDICATION
     Dates: start: 20110322

REACTIONS (3)
  - LIVE BIRTH [None]
  - GESTATIONAL DIABETES [None]
  - MATERNAL EXPOSURE DURING PREGNANCY [None]
